FAERS Safety Report 16297750 (Version 1)
Quarter: 2019Q2

REPORT INFORMATION
  Report Type: Report from Study
  Country: FI (occurrence: FI)
  Receive Date: 20190510
  Receipt Date: 20190510
  Transmission Date: 20190711
  Serious: Yes (Death)
  Sender: FDA-Public Use
  Company Number: FI-TEVA-2019-FI-1046671

PATIENT
  Age: 31 Year
  Sex: Female

DRUGS (3)
  1. DEXTROPROPOXYPHENE [Interacting]
     Active Substance: PROPOXYPHENE HYDROCHLORIDE
     Route: 065
  2. CARBAMAZEPINE. [Interacting]
     Active Substance: CARBAMAZEPINE
     Route: 065
  3. CITALOPRAM [Suspect]
     Active Substance: CITALOPRAM HYDROBROMIDE
     Route: 065

REACTIONS (3)
  - Completed suicide [Fatal]
  - Drug ineffective [Fatal]
  - Drug interaction [Fatal]
